FAERS Safety Report 24272824 (Version 5)
Quarter: 2025Q1

REPORT INFORMATION
  Report Type: Spontaneous
  Country: JP (occurrence: JP)
  Receive Date: 20240902
  Receipt Date: 20250306
  Transmission Date: 20250408
  Serious: Yes (Other)
  Sender: GENMAB
  Company Number: JP-GENMAB-2024-03093

PATIENT
  Age: 62 Year
  Sex: Male

DRUGS (14)
  1. EPKINLY [Suspect]
     Active Substance: EPCORITAMAB-BYSP
     Indication: Diffuse large B-cell lymphoma
     Route: 065
     Dates: start: 202312, end: 202312
  2. EPKINLY [Suspect]
     Active Substance: EPCORITAMAB-BYSP
     Route: 065
     Dates: start: 202401, end: 202401
  3. EPKINLY [Suspect]
     Active Substance: EPCORITAMAB-BYSP
     Route: 065
     Dates: start: 202401, end: 20240404
  4. EPKINLY [Suspect]
     Active Substance: EPCORITAMAB-BYSP
     Route: 065
  5. FLUDARA [Concomitant]
     Active Substance: FLUDARABINE PHOSPHATE
     Dates: start: 202404, end: 2024
  6. BUSULFEX [Concomitant]
     Active Substance: BUSULFAN
     Dates: start: 2024, end: 2024
  7. CYCLOPHOSPHAMIDE [Concomitant]
     Active Substance: CYCLOPHOSPHAMIDE
     Indication: Prophylaxis
     Dates: start: 202405, end: 202405
  8. TACROLIMUS [Concomitant]
     Active Substance: TACROLIMUS
     Indication: Prophylaxis
     Dates: start: 202405
  9. MYCOPHENOLATE MOFETIL [Concomitant]
     Active Substance: MYCOPHENOLATE MOFETIL
     Indication: Prophylaxis
     Dates: start: 202405
  10. CEFEPIME HYDROCHLORIDE [Concomitant]
     Active Substance: CEFEPIME HYDROCHLORIDE
     Dates: start: 202404, end: 2024
  11. MEROPENEM [Concomitant]
     Active Substance: MEROPENEM
     Dates: start: 2024, end: 202405
  12. VANCOMYCIN [Concomitant]
     Active Substance: VANCOMYCIN
     Dates: start: 202405, end: 202405
  13. CANCIDAS [Concomitant]
     Active Substance: CASPOFUNGIN ACETATE
     Dates: start: 202404, end: 202406
  14. NOXAFIL [Concomitant]
     Active Substance: POSACONAZOLE
     Dates: start: 202406

REACTIONS (3)
  - Acute graft versus host disease [Unknown]
  - Cytokine release syndrome [Unknown]
  - Cytomegalovirus infection [Unknown]

NARRATIVE: CASE EVENT DATE: 20240101
